FAERS Safety Report 25589473 (Version 1)
Quarter: 2025Q3

REPORT INFORMATION
  Report Type: Spontaneous
  Country: TR (occurrence: TR)
  Receive Date: 20250722
  Receipt Date: 20250722
  Transmission Date: 20251020
  Serious: Yes (Hospitalization, Other)
  Sender: PANACEA BIOTEC PHARMA LIMITED
  Company Number: TR-PBT-010629

PATIENT
  Age: 39 Year
  Sex: Male

DRUGS (6)
  1. TACROLIMUS [Suspect]
     Active Substance: TACROLIMUS
     Indication: Prophylaxis against transplant rejection
     Dosage: 1 MG + 1 MG
     Route: 065
     Dates: start: 20180705, end: 20180705
  2. TACROLIMUS [Suspect]
     Active Substance: TACROLIMUS
     Indication: Prophylaxis against transplant rejection
     Dosage: 2 MG+ 2 MG
     Route: 065
     Dates: start: 20180706, end: 20180706
  3. TACROLIMUS [Suspect]
     Active Substance: TACROLIMUS
     Indication: Prophylaxis against transplant rejection
     Dosage: 3 MG+ 3 MG
     Route: 065
     Dates: start: 20180707, end: 20180707
  4. TACROLIMUS [Suspect]
     Active Substance: TACROLIMUS
     Indication: Prophylaxis against transplant rejection
     Dosage: 4 MG + 4 MG
     Route: 065
     Dates: start: 20180708, end: 20180708
  5. TACROLIMUS [Suspect]
     Active Substance: TACROLIMUS
     Indication: Prophylaxis against transplant rejection
     Dosage: 6 MG + 6 MG
     Route: 065
     Dates: start: 20180709, end: 20180711
  6. TACROLIMUS [Suspect]
     Active Substance: TACROLIMUS
     Indication: Prophylaxis against transplant rejection
     Dosage: 4 MG + 4 MG
     Route: 065
     Dates: start: 20180713, end: 20180723

REACTIONS (1)
  - Myelitis [Recovered/Resolved]

NARRATIVE: CASE EVENT DATE: 20180101
